FAERS Safety Report 21092056 (Version 1)
Quarter: 2022Q3

REPORT INFORMATION
  Report Type: Spontaneous
  Country: US (occurrence: US)
  Receive Date: 20220718
  Receipt Date: 20220718
  Transmission Date: 20221027
  Serious: No
  Sender: FDA-Public Use
  Company Number: US-JNJFOC-20220718169

PATIENT
  Age: 17 Year
  Sex: Male

DRUGS (3)
  1. RISPERDAL [Suspect]
     Active Substance: RISPERIDONE
     Indication: Anger
     Dosage: 1 MG TWICE DAILY
     Route: 048
     Dates: start: 20121003
  2. RISPERDAL [Suspect]
     Active Substance: RISPERIDONE
     Indication: Affective disorder
     Dosage: 1.5 MG TWICE DAILY
     Route: 048
     Dates: start: 20130520
  3. RISPERDAL [Suspect]
     Active Substance: RISPERIDONE
     Indication: Aggression

REACTIONS (1)
  - Treatment noncompliance [Unknown]

NARRATIVE: CASE EVENT DATE: 20121001
